FAERS Safety Report 5273709-8 (Version None)
Quarter: 2007Q1

REPORT INFORMATION
  Report Type: 
  Country: None (occurrence: None)
  Receive Date: 20070321
  Receipt Date: 20070321
  Transmission Date: 20070707
  Serious: Yes (Other)
  Sender: FDA-Public Use
  Company Number: None

PATIENT
  Age: 66 Year
  Sex: Female
  Weight: 69.8539 kg

DRUGS (2)
  1. COUMADIN [Suspect]
     Indication: HYPERCOAGULATION
     Dates: start: 20070118, end: 20070319
  2. COUMADIN [Suspect]
     Indication: HYPERCOAGULATION

REACTIONS (3)
  - INTERNATIONAL NORMALISED RATIO INCREASED [None]
  - PHARMACEUTICAL PRODUCT COMPLAINT [None]
  - THERAPEUTIC RESPONSE UNEXPECTED WITH DRUG SUBSTITUTION [None]
